FAERS Safety Report 8510863-6 (Version None)
Quarter: 2012Q3

REPORT INFORMATION
  Report Type: 
  Country: None (occurrence: None)
  Receive Date: 20120716
  Receipt Date: 20120712
  Transmission Date: 20120928
  Serious: Yes (Hospitalization, Other)
  Sender: FDA-Public Use
  Company Number: CA-TEVA-348138USA

PATIENT
  Age: 58 Year
  Sex: Female

DRUGS (8)
  1. LANSOPRAZOLE [Suspect]
     Dosage: 60 MILLIGRAM;
  2. CYCLOBENZAPRINE [Concomitant]
     Route: 048
  3. ESCITALOPRAM [Concomitant]
     Route: 048
  4. DICLOFENAC SODIUM [Concomitant]
     Route: 048
  5. LEVOTHYROXINE SODIUM [Concomitant]
     Route: 048
  6. IRON [Concomitant]
     Route: 048
  7. CILAZAPRIL [Concomitant]
     Route: 048
  8. TRAZODONE HCL [Concomitant]
     Route: 048

REACTIONS (4)
  - DEHYDRATION [None]
  - RENAL FAILURE [None]
  - ABDOMINAL PAIN UPPER [None]
  - DIARRHOEA [None]
